FAERS Safety Report 6005005-5 (Version None)
Quarter: 2008Q4

REPORT INFORMATION
  Report Type: 
  Country: None (occurrence: None)
  Receive Date: 20081216
  Receipt Date: 20080911
  Transmission Date: 20090506
  Serious: No
  Sender: FDA-Public Use
  Company Number: US-BAUSCH-2008BL003934

PATIENT
  Age: 70 Year
  Sex: Female

DRUGS (2)
  1. ALAWAY [Suspect]
     Indication: EYE PRURITUS
     Route: 047
     Dates: start: 20080910, end: 20080910
  2. REWETTING DROPS [Concomitant]
     Indication: CORRECTIVE LENS USER
     Route: 047

REACTIONS (3)
  - EYE IRRITATION [None]
  - OCULAR HYPERAEMIA [None]
  - SKIN OEDEMA [None]
